FAERS Safety Report 5372198-2 (Version None)
Quarter: 2007Q2

REPORT INFORMATION
  Report Type: 
  Country: None (occurrence: None)
  Receive Date: 20070627
  Receipt Date: 20070621
  Transmission Date: 20071010
  Serious: Yes (Other)
  Sender: FDA-Public Use
  Company Number: B0471741A

PATIENT
  Age: 7 Year
  Sex: Male

DRUGS (6)
  1. RELENZA [Suspect]
     Indication: INFLUENZA
     Dosage: 10MG TWICE PER DAY
     Route: 055
     Dates: start: 20070302, end: 20070306
  2. CALONAL [Concomitant]
     Route: 065
  3. ASVERIN [Concomitant]
     Route: 048
  4. MUCODYNE [Concomitant]
     Route: 048
  5. ONON [Concomitant]
     Route: 048
  6. EBASTEL [Concomitant]
     Route: 048

REACTIONS (2)
  - ABNORMAL BEHAVIOUR [None]
  - HALLUCINATION [None]
